FAERS Safety Report 5490064-9 (Version None)
Quarter: 2007Q4

REPORT INFORMATION
  Report Type: 
  Country: None (occurrence: None)
  Receive Date: 20071018
  Receipt Date: 20071003
  Transmission Date: 20080405
  Serious: Yes (Life-Threatening, Hospitalization, Disabling)
  Sender: FDA-Public Use
  Company Number: US-GENENTECH-229138

PATIENT
  Sex: Female

DRUGS (9)
  1. RANIBIZUMAB [Suspect]
     Indication: MACULAR DEGENERATION
     Dosage: UNK, UNK
     Route: 031
     Dates: start: 20060718
  2. SYNTHROID [Concomitant]
     Indication: HYPOTHYROIDISM
     Dates: start: 19750101
  3. TARKA [Concomitant]
     Indication: HYPERTENSION
     Dates: start: 20040101
  4. CARBATROL [Concomitant]
     Indication: CONVULSION
     Dates: start: 20040101
  5. TYLENOL (CAPLET) [Concomitant]
     Indication: ARTHRITIS
  6. PROTONIX [Concomitant]
     Indication: DRUG USE FOR UNKNOWN INDICATION
     Dates: start: 20010101
  7. LASIX [Concomitant]
     Indication: HYPERTENSION
  8. AMIODARONE [Concomitant]
     Indication: ARRHYTHMIA
     Dates: start: 20041101
  9. FOSAMAX [Concomitant]
     Indication: OSTEOPOROSIS PROPHYLAXIS
     Dates: start: 20030101

REACTIONS (1)
  - GASTROINTESTINAL HAEMORRHAGE [None]
